FAERS Safety Report 12461365 (Version 1)
Quarter: 2016Q2

REPORT INFORMATION
  Report Type: Spontaneous
  Country: JP (occurrence: JP)
  Receive Date: 20160613
  Receipt Date: 20160613
  Transmission Date: 20160815
  Serious: Yes (Hospitalization)
  Sender: FDA-Public Use
  Company Number: JP-SA-2016SA105379

PATIENT
  Age: 34 Year
  Sex: Male

DRUGS (3)
  1. GARENOXACIN [Suspect]
     Active Substance: GARENOXACIN
     Route: 048
  2. FEXOFENADINE HYDROCHLORIDE. [Suspect]
     Active Substance: FEXOFENADINE HYDROCHLORIDE
     Route: 048
  3. PRANLUKAST [Suspect]
     Active Substance: PRANLUKAST
     Route: 048

REACTIONS (3)
  - Headache [Recovering/Resolving]
  - Lip swelling [Recovering/Resolving]
  - Meningitis aseptic [Recovering/Resolving]
